FAERS Safety Report 24539529 (Version 1)
Quarter: 2024Q4

REPORT INFORMATION
  Report Type: Spontaneous
  Country: TH (occurrence: TH)
  Receive Date: 20241023
  Receipt Date: 20241023
  Transmission Date: 20250114
  Serious: Yes (Death, Hospitalization, Other)
  Sender: TAKEDA
  Company Number: TH-TAKEDA-2024TUS106623

PATIENT

DRUGS (2)
  1. BRIGATINIB [Suspect]
     Active Substance: BRIGATINIB
     Indication: Product used for unknown indication
     Dosage: 90 MILLIGRAM
     Route: 065
  2. BRIGATINIB [Suspect]
     Active Substance: BRIGATINIB
     Dosage: 180 MILLIGRAM
     Route: 065

REACTIONS (2)
  - Sepsis [Fatal]
  - Hyperglycaemia [Fatal]
